FAERS Safety Report 4902230-9 (Version None)
Quarter: 2006Q1

REPORT INFORMATION
  Report Type: 
  Country: None (occurrence: None)
  Receive Date: 20060202
  Receipt Date: 20060117
  Transmission Date: 20060701
  Serious: Yes (Hospitalization)
  Sender: FDA-Public Use
  Company Number: 2005BI019391

PATIENT
  Age: 56 Year
  Sex: Male
  Weight: 95.2554 kg

DRUGS (4)
  1. AMEVIVE [Suspect]
     Indication: PSORIASIS
     Dosage: 15 MG;QW;IM
     Route: 030
     Dates: start: 20050825, end: 20051019
  2. ASPIRIN [Concomitant]
  3. LIPITOR [Concomitant]
  4. COZAAR [Concomitant]

REACTIONS (4)
  - ABDOMINAL HERNIA [None]
  - IMPAIRED HEALING [None]
  - INFECTION [None]
  - POST PROCEDURAL COMPLICATION [None]
